FAERS Safety Report 10214067 (Version 2)
Quarter: 2014Q2

REPORT INFORMATION
  Report Type: Report from Study
  Country: US (occurrence: US)
  Receive Date: 20140603
  Receipt Date: 20140617
  Transmission Date: 20141212
  Serious: Yes (Hospitalization)
  Sender: FDA-Public Use
  Company Number: US-SA-2014SA068166

PATIENT
  Age: 56 Year
  Sex: Male

DRUGS (4)
  1. LANTUS SOLOSTAR [Suspect]
     Indication: DIABETES MELLITUS
     Dosage: DOSE:30 UNIT(S)
     Route: 065
     Dates: start: 201203
  2. APIDRA SOLOSTAR [Suspect]
     Indication: DIABETES MELLITUS
     Dosage: FREQUENCY: SLIDING SCALE DOSE:45 UNIT(S)
     Route: 065
     Dates: start: 201210
  3. SOLOSTAR [Concomitant]
     Dates: start: 201203
  4. SOLOSTAR [Concomitant]
     Dates: start: 201210

REACTIONS (1)
  - Cardiac operation [Unknown]
